FAERS Safety Report 15338782 (Version 1)
Quarter: 2018Q3

REPORT INFORMATION
  Report Type: Spontaneous
  Country: FR (occurrence: FR)
  Receive Date: 20180831
  Receipt Date: 20180831
  Transmission Date: 20181010
  Serious: Yes (Death, Other)
  Sender: FDA-Public Use
  Company Number: FR-APOTEX-2018AP019517

PATIENT
  Age: 37 Year
  Sex: Female

DRUGS (6)
  1. BUPRENORPHINE. [Suspect]
     Active Substance: BUPRENORPHINE
  2. VALPROATE SODIUM. [Concomitant]
     Active Substance: VALPROATE SODIUM
  3. ACEPROMETAZINE W/MEPROBAMATE [Suspect]
     Active Substance: ACEPROMETAZINE MALEATE\MEPROBAMATE
  4. PROMETHAZINE [Suspect]
     Active Substance: PROMETHAZINE\PROMETHAZINE HYDROCHLORIDE
  5. PAROXETINE TABLET [Suspect]
     Active Substance: PAROXETINE
  6. HYDROXYZINE [Suspect]
     Active Substance: HYDROXYZINE HYDROCHLORIDE

REACTIONS (6)
  - Asphyxia [Unknown]
  - Toxicity to various agents [Fatal]
  - Respiratory depression [Unknown]
  - Completed suicide [Fatal]
  - Altered state of consciousness [Unknown]
  - Overdose [Fatal]
